FAERS Safety Report 21930984 (Version 1)
Quarter: 2023Q1

REPORT INFORMATION
  Report Type: Report from Study
  Country: DE (occurrence: DE)
  Receive Date: 20230131
  Receipt Date: 20230131
  Transmission Date: 20230417
  Serious: Yes (Hospitalization)
  Sender: FDA-Public Use
  Company Number: DE-MYLANLABS-2023M1009531

PATIENT
  Sex: Female

DRUGS (1)
  1. HULIO [Suspect]
     Active Substance: ADALIMUMAB-FKJP
     Indication: Product used for unknown indication
     Dosage: 40 MILLIGRAM, BIWEEKLY
     Route: 065

REACTIONS (4)
  - Rib fracture [Recovered/Resolved]
  - Tibia fracture [Recovered/Resolved]
  - Ankle fracture [Recovered/Resolved]
  - Soft tissue injury [Recovered/Resolved]

NARRATIVE: CASE EVENT DATE: 20220619
